FAERS Safety Report 19141163 (Version 6)
Quarter: 2023Q1

REPORT INFORMATION
  Report Type: Report from Study
  Country: US (occurrence: US)
  Receive Date: 20210415
  Receipt Date: 20230313
  Transmission Date: 20230417
  Serious: Yes (Other)
  Sender: FDA-Public Use
  Company Number: US-SHIRE-US202033309

PATIENT
  Sex: Female
  Weight: 80.726 kg

DRUGS (23)
  1. HUMAN IMMUNOGLOBULIN G\HYALURONIDASE RECOMBINANT HUMAN [Suspect]
     Active Substance: HUMAN IMMUNOGLOBULIN G\HYALURONIDASE RECOMBINANT HUMAN
     Indication: Immunodeficiency common variable
     Dosage: 40 GRAM, Q3WEEKS
     Route: 058
     Dates: start: 20210807
  2. ACETAMINOPHEN [Concomitant]
     Active Substance: ACETAMINOPHEN
  3. DIPHENHYDRAMINE [Concomitant]
     Active Substance: DIPHENHYDRAMINE
  4. LIDOCAINE [Concomitant]
     Active Substance: LIDOCAINE
  5. LORATADINE [Concomitant]
     Active Substance: LORATADINE
  6. SODIUM CHLORIDE [Concomitant]
     Active Substance: SODIUM CHLORIDE
  7. EPINEPHRINE [Concomitant]
     Active Substance: EPINEPHRINE
  8. TUMS [Concomitant]
     Active Substance: CALCIUM CARBONATE
  9. NAPROXEN [Concomitant]
     Active Substance: NAPROXEN
  10. PAROXETINE [Concomitant]
     Active Substance: PAROXETINE
  11. ACETYLCYSTEINE [Concomitant]
     Active Substance: ACETYLCYSTEINE
  12. LEVOTHYROXINE SODIUM [Concomitant]
     Active Substance: LEVOTHYROXINE SODIUM
  13. AZITHROMYCIN [Concomitant]
     Active Substance: AZITHROMYCIN
  14. VITAMIN B COMPLEX [Concomitant]
     Active Substance: CYANOCOBALAMIN\DEXPANTHENOL\NIACINAMIDE\PYRIDOXINE HYDROCHLORIDE\RIBOFLAVIN 5^-PHOSPHATE SODIUM\THIA
  15. ZINC [Concomitant]
     Active Substance: ZINC
  16. MAGNESIUM GLYCINATE [Concomitant]
     Active Substance: MAGNESIUM GLYCINATE
  17. FAMOTIDINE [Concomitant]
     Active Substance: FAMOTIDINE
  18. CHOLECALCIFEROL [Concomitant]
     Active Substance: CHOLECALCIFEROL
  19. ALBUTEROL [Concomitant]
     Active Substance: ALBUTEROL
  20. BENFOTIAMINE [Concomitant]
     Active Substance: BENFOTIAMINE
  21. SULBUTIAMINE [Concomitant]
     Active Substance: SULBUTIAMINE
  22. GABAPENTIN [Concomitant]
     Active Substance: GABAPENTIN
  23. THIAMINE HYDROCHLORIDE [Concomitant]
     Active Substance: THIAMINE HYDROCHLORIDE

REACTIONS (12)
  - Pneumothorax [Not Recovered/Not Resolved]
  - Pneumaturia [Unknown]
  - Illness [Not Recovered/Not Resolved]
  - Fatigue [Not Recovered/Not Resolved]
  - Weight increased [Unknown]
  - Histamine intolerance [Unknown]
  - Rash [Not Recovered/Not Resolved]
  - Gastrointestinal infection [Unknown]
  - Localised infection [Unknown]
  - Mobility decreased [Unknown]
  - Mycoplasma infection [Unknown]
  - Inappropriate schedule of product administration [Unknown]
